FAERS Safety Report 17846914 (Version 1)
Quarter: 2020Q2

REPORT INFORMATION
  Report Type: Spontaneous
  Country: US (occurrence: US)
  Receive Date: 20200601
  Receipt Date: 20200601
  Transmission Date: 20200714
  Serious: No
  Sender: FDA-Public Use
  Company Number: US-ASTRAZENECA-2020SE66715

PATIENT
  Age: 21171 Day
  Sex: Female

DRUGS (2)
  1. ZOMIG [Suspect]
     Active Substance: ZOLMITRIPTAN
     Dosage: 5.0MG UNKNOWN
     Route: 045
  2. SYMBICORT [Concomitant]
     Active Substance: BUDESONIDE\FORMOTEROL FUMARATE DIHYDRATE
     Indication: RHINITIS ALLERGIC

REACTIONS (2)
  - Viral infection [Unknown]
  - Device failure [Unknown]

NARRATIVE: CASE EVENT DATE: 20200411
